FAERS Safety Report 8458533-7 (Version None)
Quarter: 2012Q2

REPORT INFORMATION
  Report Type: 
  Country: None (occurrence: None)
  Receive Date: 20120615
  Receipt Date: 20120606
  Transmission Date: 20120825
  Serious: Yes (Hospitalization, Other)
  Sender: FDA-Public Use
  Company Number: 2012060035

PATIENT
  Sex: Female

DRUGS (33)
  1. FUROSEMIDE [Suspect]
  2. SERTRALINE HYDROCHLORIDE [Concomitant]
  3. HALOPERIDOL [Suspect]
     Dosage: (2 MG, AT BEDTIME), ORAL, (1 MG, AT BEDTIME), ORAL, (0.5 MG, AT BEDTIME), ORAL
     Route: 048
  4. METOLAZONE [Concomitant]
  5. ROSUVASTATIN [Concomitant]
  6. DIPHENOXYLATE HYDROCHLORIDE AND ATROPINE SULFATE [Suspect]
     Indication: DIARRHOEA
     Dosage: (2.5 MG, EVERY THREE HOURS), ORAL
     Route: 048
  7. FENTANYL [Suspect]
     Dosage: (50 MCG, EVERY 3 DAYS), TRANSDERMAL, (75 MCG, EVERY 3 DAYS), TRANSDERMAL
     Route: 062
  8. ACETAMINOPHEN [Concomitant]
  9. EZETIMIBE [Concomitant]
  10. POTASSIUM CHLORIDE [Concomitant]
  11. LEVOTHYROXINE SODIUM [Concomitant]
  12. PREDNISONE TAB [Concomitant]
  13. VITAMIN D [Concomitant]
  14. DICYCLOMINE [Suspect]
     Dosage: 40 MG (10 MG, 4 IN 1 D), ORAL
     Route: 048
  15. PSYLLIUM (PSYLLIUM) [Suspect]
     Dosage: 5.85G (2 IN 1 D), ORAL
     Route: 048
  16. FLUTICASONE SALMETROL (FLUTICASONE, SALMETROL) [Concomitant]
  17. METOPROLOL SUCCINATE [Concomitant]
  18. CARISOPRODOL [Suspect]
     Dosage: (250 MG, EVERY SIX HOURS)
  19. AMLODIPINE [Suspect]
     Dosage: (10 MG, DAILY), ORAL
     Route: 048
  20. DIGOXIN [Suspect]
     Dosage: (125 MCG, DAILY), ORAL, (125 MCG, EVERY OTHER DAY), ORAL
     Route: 048
  21. SUCRALFATE [Concomitant]
  22. TERAPERATIDE (TERAPERTIDE) [Concomitant]
  23. METAXALONE [Suspect]
     Dosage: (400 MG, FOUR TIMES DAILY), ORAL
     Route: 048
  24. ASPIRIN [Concomitant]
  25. ESOMEPRAZOLE MAGNESIUM [Concomitant]
  26. SACCHAROMYCES BOULARDII (SACCHAROMYES BOULARDII) [Concomitant]
  27. LEVALBUTEROL (LEVALBUTEROL) [Concomitant]
  28. MEMANTINE HCL [Concomitant]
  29. LORAZEPAM [Suspect]
     Indication: SLEEP DISORDER
     Dosage: 0.5-1.5MG (AT BEDTIME), ORAL, (0.5 MG, AT BEDTIME), ORAL
     Route: 048
  30. HYDROCODONE BITARTRATE AND ACETAMINOPHEN [Suspect]
     Indication: PAIN
     Dosage: 5/500 MG (EVERY FOUR TO SIX HOURS), ORAL, 5/500 MG (EVERY FOUR TO SIX HOURS), ORAL
     Route: 048
  31. CALCIUM CARBONATE [Suspect]
     Dosage: 3 TABLET (1 TABLET, 3 IN 1 D), ORAL
     Route: 048
  32. MULTIVITAMIN (VITAMIN) [Concomitant]
  33. PHENOXYBENZAMINE (PHENOXYBENZAMINE) [Concomitant]

REACTIONS (27)
  - MENTAL STATUS CHANGES [None]
  - ANXIETY [None]
  - FATIGUE [None]
  - DEMENTIA [None]
  - PATHOGEN RESISTANCE [None]
  - ASTHENIA [None]
  - TOXICITY TO VARIOUS AGENTS [None]
  - BLOOD ALBUMIN DECREASED [None]
  - CYSTITIS ESCHERICHIA [None]
  - WEIGHT DECREASED [None]
  - HALLUCINATION, VISUAL [None]
  - INSOMNIA [None]
  - HAEMOGLOBIN DECREASED [None]
  - PROTEIN TOTAL DECREASED [None]
  - MEMORY IMPAIRMENT [None]
  - ELECTROENCEPHALOGRAM ABNORMAL [None]
  - BLOOD ALKALINE PHOSPHATASE INCREASED [None]
  - DEHYDRATION [None]
  - INCORRECT DOSE ADMINISTERED [None]
  - CONFUSIONAL STATE [None]
  - DISORIENTATION [None]
  - HAEMATOCRIT DECREASED [None]
  - DELIRIUM [None]
  - DECREASED APPETITE [None]
  - CONSTIPATION [None]
  - AGITATION [None]
  - MAJOR DEPRESSION [None]
